FAERS Safety Report 4270066-0 (Version None)
Quarter: 2004Q1

REPORT INFORMATION
  Report Type: 
  Country: None (occurrence: None)
  Receive Date: 20040113
  Receipt Date: 20040113
  Transmission Date: 20041129
  Serious: Yes (Other)
  Sender: FDA-Public Use
  Company Number: None

PATIENT
  Age: 51 Year
  Sex: Male
  Weight: 76.8 kg

DRUGS (10)
  1. GADODIAMIDE [Suspect]
     Indication: NUCLEAR MAGNETIC RESONANCE IMAGING
     Dosage: ONCE
     Dates: start: 20031119
  2. BACLOFEN [Concomitant]
  3. APAP TAB [Concomitant]
  4. DOCUSATE [Concomitant]
  5. DIAZEPAM [Concomitant]
  6. FEGLUC [Concomitant]
  7. M.V.I. [Concomitant]
  8. KCL TAB [Concomitant]
  9. ZANTAC [Concomitant]
  10. TEMAZEPAM [Concomitant]

REACTIONS (4)
  - CHILLS [None]
  - NAUSEA [None]
  - TACHYCARDIA [None]
  - TREMOR [None]
